FAERS Safety Report 5319547-9 (Version None)
Quarter: 2007Q2

REPORT INFORMATION
  Report Type: 
  Country: None (occurrence: None)
  Receive Date: 20070508
  Receipt Date: 20070427
  Transmission Date: 20071010
  Serious: Yes (Other)
  Sender: FDA-Public Use
  Company Number: US-ELI_LILLY_AND_COMPANY-US200704006243

PATIENT
  Sex: Female

DRUGS (2)
  1. FORTEO [Suspect]
     Dosage: UNK, UNK
     Dates: start: 20050901, end: 20070416
  2. FORTEO [Suspect]
     Dosage: UNK, UNK
     Dates: start: 20070418

REACTIONS (5)
  - DECREASED ACTIVITY [None]
  - ENDOMETRIAL CANCER [None]
  - ENDOMETRIAL HYPERPLASIA [None]
  - LYMPHADENECTOMY [None]
  - UTERINE POLYP [None]
